FAERS Safety Report 23667507 (Version 1)
Quarter: 2024Q1

REPORT INFORMATION
  Report Type: Other
  Country: TW (occurrence: TW)
  Receive Date: 20240325
  Receipt Date: 20240325
  Transmission Date: 20240410
  Serious: Yes (Other)
  Sender: FDA-Public Use
  Company Number: TW-002147023-NVSC2023TW264913

PATIENT
  Age: 81 Year
  Sex: Female

DRUGS (1)
  1. LUCENTIS [Suspect]
     Active Substance: RANIBIZUMAB
     Indication: Neovascular age-related macular degeneration
     Route: 047
     Dates: start: 202105

REACTIONS (5)
  - Detachment of retinal pigment epithelium [Unknown]
  - Retinal oedema [Unknown]
  - Oedema [Unknown]
  - Visual acuity reduced [Unknown]
  - Retinal disorder [Unknown]

NARRATIVE: CASE EVENT DATE: 20231129
